FAERS Safety Report 19685463 (Version 1)
Quarter: 2021Q3

REPORT INFORMATION
  Report Type: Spontaneous
  Country: CA (occurrence: CA)
  Receive Date: 20210811
  Receipt Date: 20210811
  Transmission Date: 20211014
  Serious: Yes (Other)
  Sender: FDA-Public Use
  Company Number: CA-PFIZER INC-202100985762

PATIENT
  Sex: Female

DRUGS (3)
  1. BRILINTA [Suspect]
     Active Substance: TICAGRELOR
     Indication: STENT PLACEMENT
     Dosage: 90 MG
     Route: 048
  2. ASA [Suspect]
     Active Substance: ASPIRIN
     Dosage: 80 MG, 1 EVERY 1 DAYS
     Route: 065
  3. LIPITOR [Suspect]
     Active Substance: ATORVASTATIN CALCIUM
     Dosage: 40 MG, 1 EVERY 1 DAYS
     Route: 065

REACTIONS (9)
  - Peripheral vascular disorder [Unknown]
  - Middle insomnia [Unknown]
  - Skin discolouration [Unknown]
  - Fatigue [Unknown]
  - Headache [Unknown]
  - Back pain [Unknown]
  - Cough [Unknown]
  - Heart rate irregular [Unknown]
  - Nausea [Unknown]
